FAERS Safety Report 16571754 (Version 5)
Quarter: 2019Q3

REPORT INFORMATION
  Report Type: Report from Study
  Country: JP (occurrence: JP)
  Receive Date: 20190715
  Receipt Date: 20190913
  Transmission Date: 20191004
  Serious: Yes (Hospitalization)
  Sender: FDA-Public Use
  Company Number: JP-ROCHE-2352258

PATIENT
  Age: 69 Year
  Sex: Male
  Weight: 64 kg

DRUGS (16)
  1. FLURBIPROFEN. [Concomitant]
     Active Substance: FLURBIPROFEN
     Indication: NERVE ROOT INJURY CERVICAL
     Route: 065
     Dates: start: 2017
  2. MEPIVACAINE HYDROCHLORIDE. [Concomitant]
     Active Substance: MEPIVACAINE HYDROCHLORIDE
     Route: 065
     Dates: start: 20180827
  3. FEXOFENADINE HYDROCHLORIDE. [Concomitant]
     Active Substance: FEXOFENADINE HYDROCHLORIDE
     Indication: SEASONAL ALLERGY
     Route: 048
     Dates: start: 20180703
  4. MEPIVACAINE HYDROCHLORIDE. [Concomitant]
     Active Substance: MEPIVACAINE HYDROCHLORIDE
     Indication: NERVE ROOT INJURY CERVICAL
     Route: 065
     Dates: start: 20180730
  5. FEBUXOSTAT. [Concomitant]
     Active Substance: FEBUXOSTAT
     Indication: HYPERURICAEMIA
     Route: 048
     Dates: start: 2015
  6. SODIUM PICOSULFATE [Concomitant]
     Active Substance: SODIUM PICOSULFATE
     Indication: CONSTIPATION
     Route: 048
     Dates: start: 20180410
  7. BETAMETHASONE BUTYRATE PROPIONATE [Concomitant]
     Active Substance: BETAMETHASONE BUTYRATE PROPIONATE
     Indication: RASH
     Route: 065
     Dates: start: 20180522
  8. ACETAMINOPHEN. [Concomitant]
     Active Substance: ACETAMINOPHEN
     Indication: PAIN
     Route: 048
     Dates: start: 20181127
  9. ATEZOLIZUMAB. [Suspect]
     Active Substance: ATEZOLIZUMAB
     Indication: TRANSITIONAL CELL CARCINOMA
     Dosage: DATE OF MOST RECENT DOSE OF MONOTHERAPY ATEZOLIZUMAB PRIOR TO AE ONSET : 14 JUN 2019
     Route: 042
     Dates: start: 20180118
  10. BROTIZOLAM [Concomitant]
     Active Substance: BROTIZOLAM
     Indication: INSOMNIA
  11. ZOLPIDEM TARTRATE. [Concomitant]
     Active Substance: ZOLPIDEM TARTRATE
     Indication: INSOMNIA
     Route: 048
     Dates: start: 20190423
  12. MAGNESIUM OXIDE. [Concomitant]
     Active Substance: MAGNESIUM OXIDE
     Indication: CONSTIPATION
     Route: 048
     Dates: start: 20180320
  13. VONOPRAZAN FUMARATE [Concomitant]
     Active Substance: VONOPRAZAN FUMURATE
     Indication: CHRONIC GASTRITIS
     Route: 048
     Dates: start: 20180522
  14. TAFLUPROST [Concomitant]
     Active Substance: TAFLUPROST
     Indication: GLAUCOMA
     Route: 065
     Dates: start: 20180703
  15. GENTAMICIN SULFATE. [Concomitant]
     Active Substance: GENTAMICIN SULFATE
     Indication: RASH
     Route: 065
     Dates: start: 20181127
  16. LACTULOSE. [Concomitant]
     Active Substance: LACTULOSE
     Indication: CONSTIPATION
     Route: 048
     Dates: start: 20190129

REACTIONS (2)
  - Pancreatitis [Not Recovered/Not Resolved]
  - Hepatic function abnormal [Recovering/Resolving]

NARRATIVE: CASE EVENT DATE: 20190702
